FAERS Safety Report 10223202 (Version 4)
Quarter: 2014Q2

REPORT INFORMATION
  Report Type: Spontaneous
  Country: BR (occurrence: BR)
  Receive Date: 20140608
  Receipt Date: 20140627
  Transmission Date: 20141212
  Serious: Yes (Life-Threatening, Other)
  Sender: FDA-Public Use
  Company Number: BR-ROCHE-1390429

PATIENT
  Age: 2 Year
  Sex: Female

DRUGS (3)
  1. ACTEMRA [Suspect]
     Indication: JUVENILE IDIOPATHIC ARTHRITIS
     Route: 042
     Dates: start: 20140227
  2. ACTEMRA [Suspect]
     Route: 042
     Dates: start: 20140313, end: 20140313
  3. INDOMETHACIN [Concomitant]
     Route: 065

REACTIONS (3)
  - Respiratory arrest [Recovered/Resolved]
  - Hypertonia [Recovered/Resolved]
  - Rash [Recovered/Resolved]
